FAERS Safety Report 9116798 (Version 5)
Quarter: 2013Q2

REPORT INFORMATION
  Report Type: Report from Study
  Country: US (occurrence: US)
  Receive Date: 20130225
  Receipt Date: 20130419
  Transmission Date: 20140414
  Serious: Yes (Other)
  Sender: FDA-Public Use
  Company Number: US-VERTEX PHARMACEUTICALS INC.-2013-002508

PATIENT
  Age: 57 Year
  Sex: Male
  Weight: 68 kg

DRUGS (6)
  1. VX-950 (TELAPREVIR) [Suspect]
     Indication: HEPATITIS C
     Dosage: 1125 MG, BID
     Route: 048
     Dates: start: 201212
  2. PEGASYS [Suspect]
     Indication: HEPATITIS C
     Dosage: 180 ?G, QW
     Route: 058
     Dates: start: 201212
  3. RIBASPHERE [Suspect]
     Indication: HEPATITIS C
     Dosage: 600MG AM/400MG PM
     Route: 048
     Dates: start: 201212
  4. PANTOPRAZOLE [Concomitant]
     Dosage: 1 DF, QD
     Route: 048
  5. DIOVAN [Concomitant]
     Dosage: 1 DF, QD
     Route: 048
  6. VITAMIN C [Concomitant]
     Dosage: 1 DF, QD
     Route: 048

REACTIONS (11)
  - Haemoglobin decreased [Unknown]
  - Blood count abnormal [Unknown]
  - Heart rate increased [Unknown]
  - Dyspnoea [Unknown]
  - Headache [Unknown]
  - Dizziness [Unknown]
  - Insomnia [Unknown]
  - Hypoaesthesia [Unknown]
  - Pyrexia [Unknown]
  - Chills [Unknown]
  - Fatigue [Unknown]
